FAERS Safety Report 5047351-8 (Version None)
Quarter: 2006Q3

REPORT INFORMATION
  Report Type: 
  Country: None (occurrence: None)
  Receive Date: 20060703
  Receipt Date: 20060619
  Transmission Date: 20061208
  Serious: Yes (Hospitalization)
  Sender: FDA-Public Use
  Company Number: GXKR2006ES03455

PATIENT
  Age: 81 Year
  Sex: Female

DRUGS (2)
  1. AZITHROMYCIN [Suspect]
     Indication: TRACHEOBRONCHITIS
     Dosage: 500 MG, QD
  2. AMOXICILLIN [Concomitant]

REACTIONS (12)
  - ABNORMAL BEHAVIOUR [None]
  - ANOREXIA [None]
  - CATATONIA [None]
  - DELUSION [None]
  - DIET REFUSAL [None]
  - INSOMNIA [None]
  - MAJOR DEPRESSION [None]
  - MUTISM [None]
  - POSTURE ABNORMAL [None]
  - REFUSAL OF TREATMENT BY PATIENT [None]
  - SPEECH DISORDER [None]
  - SUICIDAL IDEATION [None]
